FAERS Safety Report 7493854-6 (Version None)
Quarter: 2011Q2

REPORT INFORMATION
  Report Type: 
  Country: None (occurrence: None)
  Receive Date: 20110520
  Receipt Date: 20110516
  Transmission Date: 20111010
  Serious: Yes (Life-Threatening)
  Sender: FDA-Public Use
  Company Number: JP-ASTRAZENECA-2011SE30193

PATIENT
  Age: 41 Year
  Sex: Male

DRUGS (2)
  1. CRESTOR [Suspect]
     Dosage: 30 TAB
     Route: 048
  2. 2 DRUGS [Suspect]

REACTIONS (2)
  - INTENTIONAL OVERDOSE [None]
  - SUICIDE ATTEMPT [None]
